FAERS Safety Report 25967623 (Version 1)
Quarter: 2025Q4

REPORT INFORMATION
  Report Type: Spontaneous
  Country: CN (occurrence: CN)
  Receive Date: 20251028
  Receipt Date: 20251028
  Transmission Date: 20260118
  Serious: Yes (Other)
  Sender: PHARMOBEDIENT CONSULTING, LLC
  Company Number: CN-Pharmobedient-000372

PATIENT
  Age: 59 Year
  Sex: Female

DRUGS (2)
  1. CISPLATIN [Suspect]
     Active Substance: CISPLATIN
     Indication: Gallbladder cancer
     Dosage: ON DAYS 1 AND 8 OF A THREE-WEEK CYCLE
     Dates: start: 20200402
  2. GEMCITABINE [Suspect]
     Active Substance: GEMCITABINE
     Indication: Gallbladder cancer
     Dosage: ON DAYS 1 AND 8 OF A THREE-WEEK CYCLE
     Dates: start: 20200402

REACTIONS (4)
  - Stevens-Johnson syndrome [Recovering/Resolving]
  - Gastrointestinal obstruction [Recovering/Resolving]
  - Drug intolerance [Unknown]
  - Quality of life decreased [Unknown]

NARRATIVE: CASE EVENT DATE: 20200401
